FAERS Safety Report 15645368 (Version 6)
Quarter: 2022Q1

REPORT INFORMATION
  Report Type: Report from Study
  Country: US (occurrence: US)
  Receive Date: 20181121
  Receipt Date: 20220214
  Transmission Date: 20220423
  Serious: Yes (Other)
  Sender: FDA-Public Use
  Company Number: US-SHIRE-US201844726

PATIENT
  Age: 44 Year
  Sex: Female

DRUGS (20)
  1. TEDUGLUTIDE [Suspect]
     Active Substance: TEDUGLUTIDE
     Indication: Product used for unknown indication
     Dosage: 0.17 UNK
     Route: 065
     Dates: start: 20180308
  2. TEDUGLUTIDE [Suspect]
     Active Substance: TEDUGLUTIDE
     Indication: Product used for unknown indication
     Dosage: 0.17 UNK
     Route: 065
     Dates: start: 20180308
  3. TEDUGLUTIDE [Suspect]
     Active Substance: TEDUGLUTIDE
     Indication: Product used for unknown indication
     Dosage: 0.17 UNK
     Route: 065
     Dates: start: 20180308
  4. TEDUGLUTIDE [Suspect]
     Active Substance: TEDUGLUTIDE
     Indication: Product used for unknown indication
     Dosage: 0.17 UNK
     Route: 065
     Dates: start: 20180308
  5. TEDUGLUTIDE [Suspect]
     Active Substance: TEDUGLUTIDE
     Dosage: 0.17 UNK
     Route: 058
     Dates: start: 20180308
  6. TEDUGLUTIDE [Suspect]
     Active Substance: TEDUGLUTIDE
     Dosage: 0.17 UNK
     Route: 058
     Dates: start: 20180308
  7. TEDUGLUTIDE [Suspect]
     Active Substance: TEDUGLUTIDE
     Dosage: 0.17 UNK
     Route: 058
     Dates: start: 20180308
  8. TEDUGLUTIDE [Suspect]
     Active Substance: TEDUGLUTIDE
     Dosage: 0.17 UNK
     Route: 058
     Dates: start: 20180308
  9. TEDUGLUTIDE [Suspect]
     Active Substance: TEDUGLUTIDE
     Dosage: 0.315 UNK,QD
     Route: 058
     Dates: start: 20180308
  10. TEDUGLUTIDE [Suspect]
     Active Substance: TEDUGLUTIDE
     Dosage: 0.315 UNK,QD
     Route: 058
     Dates: start: 20180308
  11. TEDUGLUTIDE [Suspect]
     Active Substance: TEDUGLUTIDE
     Dosage: 0.315 UNK,QD
     Route: 058
     Dates: start: 20180308
  12. TEDUGLUTIDE [Suspect]
     Active Substance: TEDUGLUTIDE
     Dosage: 0.315 UNK,QD
     Route: 058
     Dates: start: 20180308
  13. TEDUGLUTIDE [Suspect]
     Active Substance: TEDUGLUTIDE
     Dosage: 0.315 UNK
     Route: 050
     Dates: start: 20180308, end: 20210902
  14. TEDUGLUTIDE [Suspect]
     Active Substance: TEDUGLUTIDE
     Dosage: 0.315 UNK
     Route: 050
     Dates: start: 20180308, end: 20210902
  15. TEDUGLUTIDE [Suspect]
     Active Substance: TEDUGLUTIDE
     Dosage: 0.315 UNK
     Route: 050
     Dates: start: 20180308, end: 20210902
  16. TEDUGLUTIDE [Suspect]
     Active Substance: TEDUGLUTIDE
     Dosage: 0.315 UNK
     Route: 050
     Dates: start: 20180308, end: 20210902
  17. TEDUGLUTIDE [Suspect]
     Active Substance: TEDUGLUTIDE
     Dosage: 0.315 UNK
     Route: 050
     Dates: start: 20180308
  18. TEDUGLUTIDE [Suspect]
     Active Substance: TEDUGLUTIDE
     Dosage: 0.315 UNK
     Route: 050
     Dates: start: 20180308
  19. TEDUGLUTIDE [Suspect]
     Active Substance: TEDUGLUTIDE
     Dosage: 0.315 UNK
     Route: 050
     Dates: start: 20180308
  20. TEDUGLUTIDE [Suspect]
     Active Substance: TEDUGLUTIDE
     Dosage: 0.315 UNK
     Route: 050
     Dates: start: 20180308

REACTIONS (11)
  - Crohn^s disease [Not Recovered/Not Resolved]
  - Stoma site oedema [Unknown]
  - Chills [Unknown]
  - Pyrexia [Unknown]
  - Weight decreased [Unknown]
  - Diarrhoea [Unknown]
  - Hernia [Unknown]
  - Abdominal wall mass [Unknown]
  - Weight increased [Unknown]
  - Vomiting [Unknown]
  - Abdominal pain upper [Unknown]

NARRATIVE: CASE EVENT DATE: 20210311
